FAERS Safety Report 5836549-4 (Version None)
Quarter: 2008Q3

REPORT INFORMATION
  Report Type: 
  Country: None (occurrence: None)
  Receive Date: 20080807
  Receipt Date: 20080801
  Transmission Date: 20090109
  Serious: Yes (Hospitalization)
  Sender: FDA-Public Use
  Company Number: BR-TEVA-171000USA

PATIENT
  Age: 7 Year
  Sex: Male
  Weight: 25 kg

DRUGS (2)
  1. PIMOZIDE TABLETS [Suspect]
     Indication: DYSKINESIA
     Route: 048
     Dates: start: 20080331, end: 20080410
  2. PIMOZIDE TABLETS [Suspect]
     Route: 046
     Dates: start: 20080412

REACTIONS (15)
  - AGITATION [None]
  - ASTHENIA [None]
  - BACTERIAL TOXAEMIA [None]
  - BREATH SOUNDS [None]
  - DEHYDRATION [None]
  - DRY MOUTH [None]
  - DYSPNOEA [None]
  - DYSURIA [None]
  - EATING DISORDER SYMPTOM [None]
  - FATIGUE [None]
  - INTENTIONAL DRUG MISUSE [None]
  - OROPHARYNGEAL PAIN [None]
  - PNEUMONIA [None]
  - PYREXIA [None]
  - TREMOR [None]
